FAERS Safety Report 15276272 (Version 1)
Quarter: 2018Q3

REPORT INFORMATION
  Report Type: Spontaneous
  Country: US (occurrence: US)
  Receive Date: 20180814
  Receipt Date: 20180814
  Transmission Date: 20181010
  Serious: No
  Sender: FDA-Public Use
  Company Number: US-009507513-1512USA007476

PATIENT
  Age: 20 Year
  Sex: Female

DRUGS (6)
  1. ISENTRESS [Suspect]
     Active Substance: RALTEGRAVIR POTASSIUM
     Dosage: UNK, QD, TOTAL DAILY DOSE 800 (UNITS NOT PROVIDED), 1 COURSE NUMBER
     Route: 048
  2. ZIDOVUDINE. [Suspect]
     Active Substance: ZIDOVUDINE
     Dosage: UNK, QD, TOTAL DAILY DOSE: 1107.67 (UNITS NOT PROVIDED), 2 COURSE NUMBER
     Route: 042
  3. ABACAVIR SULFATE (+) LAMIVUDINE [Suspect]
     Active Substance: ABACAVIR SULFATE\LAMIVUDINE
     Dosage: TOTAL DAILY DOSE: 1 (UNITS NOT PROVIDED)
     Route: 048
  4. ZIDOVUDINE. [Suspect]
     Active Substance: ZIDOVUDINE
     Dosage: UNK, QD, TOTAL DAILY DOSE:155 (UNITS NOT PROVIDED), 1 COURSE NUMBER
     Route: 042
  5. RITONAVIR. [Suspect]
     Active Substance: RITONAVIR
     Dosage: UNK, QD, TOTAL DAILY DOSE:100 (UNITS NOT PROVIDED), 1 COURSE NUMBER
     Route: 048
  6. ATAZANAVIR. [Suspect]
     Active Substance: ATAZANAVIR SULFATE
     Dosage: UNK, QD, TOTAL DAILY DOSE: 400 (UNITS NOT PROVIDED), 1 COURSE NUMBER
     Route: 048

REACTIONS (1)
  - Maternal exposure during pregnancy [Recovered/Resolved]
